FAERS Safety Report 9637884 (Version 3)
Quarter: 2013Q4

REPORT INFORMATION
  Report Type: Spontaneous
  Country: JP (occurrence: JP)
  Receive Date: 20131022
  Receipt Date: 20131104
  Transmission Date: 20140711
  Serious: Yes (Other)
  Sender: FDA-Public Use
  Company Number: JP-NOVOPROD-389099

PATIENT
  Age: 71 Year
  Sex: Male

DRUGS (3)
  1. NOVORAPID CHU FLEXPEN [Suspect]
     Indication: TYPE 2 DIABETES MELLITUS
     Dosage: 4 U, BID (LUNCH+EVENING)
     Route: 058
     Dates: start: 201011
  2. LANTUS [Concomitant]
     Indication: TYPE 2 DIABETES MELLITUS
     Dosage: 4 U, QD
     Route: 058
     Dates: start: 201011
  3. TAKEPRON [Concomitant]
     Dosage: 500 MG, QD
     Route: 048
     Dates: start: 201011

REACTIONS (2)
  - Myeloproliferative disorder [Not Recovered/Not Resolved]
  - White blood cell count increased [Not Recovered/Not Resolved]
